FAERS Safety Report 21958998 (Version 4)
Quarter: 2024Q1

REPORT INFORMATION
  Report Type: Spontaneous
  Country: US (occurrence: US)
  Receive Date: 20230206
  Receipt Date: 20240129
  Transmission Date: 20240410
  Serious: No
  Sender: FDA-Public Use
  Company Number: US-PFIZER INC-PV202300022354

PATIENT
  Age: 59 Year
  Sex: Female

DRUGS (1)
  1. IBRANCE [Suspect]
     Active Substance: PALBOCICLIB
     Dosage: 125 MG, ONE TAB DAILY, ON DAYS 1-21, EVERY 4 WEEKS (7 DAYS OFF, 28 DAY CYCLE)

REACTIONS (1)
  - Tumour marker increased [Unknown]
